FAERS Safety Report 6967411-1 (Version None)
Quarter: 2010Q3

REPORT INFORMATION
  Report Type: 
  Country: None (occurrence: None)
  Receive Date: 20100907
  Receipt Date: 20100830
  Transmission Date: 20110219
  Serious: Yes (Other)
  Sender: FDA-Public Use
  Company Number: PHHY2010FR58082

PATIENT
  Age: 85 Year
  Sex: Female

DRUGS (1)
  1. EXELON [Suspect]
     Route: 062

REACTIONS (4)
  - BLOOD PRESSURE INCREASED [None]
  - CEREBROVASCULAR DISORDER [None]
  - HEMIPLEGIA [None]
  - URINARY TRACT INFECTION [None]
